FAERS Safety Report 13265925 (Version 1)
Quarter: 2017Q1

REPORT INFORMATION
  Report Type: Spontaneous
  Country: CN (occurrence: CN)
  Receive Date: 20170223
  Receipt Date: 20170223
  Transmission Date: 20170428
  Serious: Yes (Hospitalization, Other)
  Sender: FDA-Public Use
  Company Number: CN-ELI_LILLY_AND_COMPANY-CN201702005820

PATIENT
  Age: 58 Year
  Sex: Male
  Weight: 54 kg

DRUGS (4)
  1. SODIUM CHLORIDE. [Concomitant]
     Active Substance: SODIUM CHLORIDE
     Dosage: 100 ML, QD
     Route: 042
     Dates: start: 20160803, end: 20160803
  2. SODIUM CHLORIDE. [Concomitant]
     Active Substance: SODIUM CHLORIDE
     Dosage: 500 ML, QD
     Route: 042
     Dates: start: 20160803, end: 20160803
  3. GEMZAR [Suspect]
     Active Substance: GEMCITABINE HYDROCHLORIDE
     Indication: NASOPHARYNGEAL CANCER
     Dosage: 1.4 G, QD
     Route: 042
     Dates: start: 20160803, end: 20160803
  4. NUO XIN [Suspect]
     Active Substance: CISPLATIN
     Indication: NASOPHARYNGEAL CANCER
     Dosage: 120 MG, QD
     Route: 042
     Dates: start: 20160803, end: 20160803

REACTIONS (5)
  - Alanine aminotransferase increased [Recovering/Resolving]
  - Epistaxis [Unknown]
  - Drug-induced liver injury [Recovering/Resolving]
  - Aspartate aminotransferase increased [Recovering/Resolving]
  - Off label use [Unknown]

NARRATIVE: CASE EVENT DATE: 20160803
